FAERS Safety Report 26134693 (Version 1)
Quarter: 2025Q4

REPORT INFORMATION
  Report Type: Report from Study
  Country: US (occurrence: US)
  Receive Date: 20251209
  Receipt Date: 20251209
  Transmission Date: 20260118
  Serious: Yes (Death)
  Sender: MYLAN
  Company Number: US-MYLANLABS-2025M1102981

PATIENT
  Age: 26 Year

DRUGS (36)
  1. TRETINOIN [Suspect]
     Active Substance: TRETINOIN
     Indication: Acute promyelocytic leukaemia
     Dosage: UNK, AS A PART OF INDUCTION THERAPY
  2. TRETINOIN [Suspect]
     Active Substance: TRETINOIN
     Dosage: UNK, AS A PART OF INDUCTION THERAPY
  3. TRETINOIN [Suspect]
     Active Substance: TRETINOIN
     Dosage: UNK, AS A PART OF INDUCTION THERAPY
     Route: 065
  4. TRETINOIN [Suspect]
     Active Substance: TRETINOIN
     Dosage: UNK, AS A PART OF INDUCTION THERAPY
     Route: 065
  5. TRETINOIN [Suspect]
     Active Substance: TRETINOIN
     Dosage: UNK, AS A PART OF CONSOLIDATION THERAPY
  6. TRETINOIN [Suspect]
     Active Substance: TRETINOIN
     Dosage: UNK, AS A PART OF CONSOLIDATION THERAPY
  7. TRETINOIN [Suspect]
     Active Substance: TRETINOIN
     Dosage: UNK, AS A PART OF CONSOLIDATION THERAPY
     Route: 065
  8. TRETINOIN [Suspect]
     Active Substance: TRETINOIN
     Dosage: UNK, AS A PART OF CONSOLIDATION THERAPY
     Route: 065
  9. TRETINOIN [Suspect]
     Active Substance: TRETINOIN
     Dosage: UNK, AS A PART OF MAINTENANCE THERAPY
  10. TRETINOIN [Suspect]
     Active Substance: TRETINOIN
     Dosage: UNK, AS A PART OF MAINTENANCE THERAPY
     Route: 065
  11. TRETINOIN [Suspect]
     Active Substance: TRETINOIN
     Dosage: UNK, AS A PART OF MAINTENANCE THERAPY
  12. TRETINOIN [Suspect]
     Active Substance: TRETINOIN
     Dosage: UNK, AS A PART OF MAINTENANCE THERAPY
     Route: 065
  13. DEXAMETHASONE [Suspect]
     Active Substance: DEXAMETHASONE
     Indication: Acute promyelocytic leukaemia
     Dosage: UNK, AS A PART OF INDUCTION THERAPY
  14. DEXAMETHASONE [Suspect]
     Active Substance: DEXAMETHASONE
     Dosage: UNK, AS A PART OF INDUCTION THERAPY
     Route: 065
  15. DEXAMETHASONE [Suspect]
     Active Substance: DEXAMETHASONE
     Dosage: UNK, AS A PART OF INDUCTION THERAPY
     Route: 065
  16. DEXAMETHASONE [Suspect]
     Active Substance: DEXAMETHASONE
     Dosage: UNK, AS A PART OF INDUCTION THERAPY
  17. ETOPOSIDE [Suspect]
     Active Substance: ETOPOSIDE
     Indication: Acute promyelocytic leukaemia
     Dosage: UNK, AS A PART OF INDUCTION THERAPY
  18. ETOPOSIDE [Suspect]
     Active Substance: ETOPOSIDE
     Dosage: UNK, AS A PART OF INDUCTION THERAPY
     Route: 065
  19. ETOPOSIDE [Suspect]
     Active Substance: ETOPOSIDE
     Dosage: UNK, AS A PART OF INDUCTION THERAPY
     Route: 065
  20. ETOPOSIDE [Suspect]
     Active Substance: ETOPOSIDE
     Dosage: UNK, AS A PART OF INDUCTION THERAPY
  21. CYTARABINE [Suspect]
     Active Substance: CYTARABINE
     Indication: Acute promyelocytic leukaemia
     Dosage: UNK, AS A PART OF INDUCTION THERAPY
  22. CYTARABINE [Suspect]
     Active Substance: CYTARABINE
     Dosage: UNK, AS A PART OF INDUCTION THERAPY
     Route: 065
  23. CYTARABINE [Suspect]
     Active Substance: CYTARABINE
     Dosage: UNK, AS A PART OF INDUCTION THERAPY
     Route: 065
  24. CYTARABINE [Suspect]
     Active Substance: CYTARABINE
     Dosage: UNK, AS A PART OF INDUCTION THERAPY
  25. THIOGUANINE [Suspect]
     Active Substance: THIOGUANINE
     Indication: Acute promyelocytic leukaemia
     Dosage: UNK, AS A PART OF INDUCTION THERAPY
  26. THIOGUANINE [Suspect]
     Active Substance: THIOGUANINE
     Dosage: UNK, AS A PART OF INDUCTION THERAPY
     Route: 065
  27. THIOGUANINE [Suspect]
     Active Substance: THIOGUANINE
     Dosage: UNK, AS A PART OF INDUCTION THERAPY
     Route: 065
  28. THIOGUANINE [Suspect]
     Active Substance: THIOGUANINE
     Dosage: UNK, AS A PART OF INDUCTION THERAPY
  29. DAUNORUBICIN [Suspect]
     Active Substance: DAUNORUBICIN
     Indication: Acute promyelocytic leukaemia
     Dosage: UNK, AS A PART OF INDUCTION THERAPY
  30. DAUNORUBICIN [Suspect]
     Active Substance: DAUNORUBICIN
     Dosage: UNK, AS A PART OF INDUCTION THERAPY
     Route: 065
  31. DAUNORUBICIN [Suspect]
     Active Substance: DAUNORUBICIN
     Dosage: UNK, AS A PART OF INDUCTION THERAPY
     Route: 065
  32. DAUNORUBICIN [Suspect]
     Active Substance: DAUNORUBICIN
     Dosage: UNK, AS A PART OF INDUCTION THERAPY
  33. ARSENIC TRIOXIDE [Suspect]
     Active Substance: ARSENIC TRIOXIDE
     Indication: Acute promyelocytic leukaemia
     Dosage: UNK, AS A PART OF CONSOLIDATION THERAPY
  34. ARSENIC TRIOXIDE [Suspect]
     Active Substance: ARSENIC TRIOXIDE
     Dosage: UNK, AS A PART OF CONSOLIDATION THERAPY
     Route: 065
  35. ARSENIC TRIOXIDE [Suspect]
     Active Substance: ARSENIC TRIOXIDE
     Dosage: UNK, AS A PART OF CONSOLIDATION THERAPY
     Route: 065
  36. ARSENIC TRIOXIDE [Suspect]
     Active Substance: ARSENIC TRIOXIDE
     Dosage: UNK, AS A PART OF CONSOLIDATION THERAPY

REACTIONS (2)
  - Acute myeloid leukaemia [Fatal]
  - Product prescribing issue [Unknown]
